FAERS Safety Report 25684680 (Version 3)
Quarter: 2025Q3

REPORT INFORMATION
  Report Type: Spontaneous
  Country: US (occurrence: US)
  Receive Date: 20250815
  Receipt Date: 20250913
  Transmission Date: 20251021
  Serious: Yes (Hospitalization)
  Sender: ABBVIE
  Company Number: US-ABBVIE-6411972

PATIENT
  Age: 65 Year
  Sex: Female

DRUGS (4)
  1. LINZESS [Suspect]
     Active Substance: LINACLOTIDE
     Indication: Faecaloma
     Dosage: FORM STRENGTH: 145 MICROGRAM?(LINACLOTIDE 145MCG CAP (TBD)
     Route: 048
     Dates: start: 20250624, end: 20250624
  2. ASPIRIN [Concomitant]
     Active Substance: ASPIRIN
     Indication: Product used for unknown indication
  3. VITAMIN D3 [Concomitant]
     Active Substance: CHOLECALCIFEROL
     Indication: Product used for unknown indication
  4. LOSARTAN [Concomitant]
     Active Substance: LOSARTAN
     Indication: Hypertension

REACTIONS (6)
  - Diverticulitis [Unknown]
  - Dehydration [Unknown]
  - Fluid intake reduced [Unknown]
  - Dyspnoea [Unknown]
  - Feeding disorder [Unknown]
  - Anal incontinence [Unknown]

NARRATIVE: CASE EVENT DATE: 20250624
